FAERS Safety Report 4762006-2 (Version None)
Quarter: 2005Q3

REPORT INFORMATION
  Report Type: 
  Country: None (occurrence: None)
  Receive Date: 20050831
  Receipt Date: 20050624
  Transmission Date: 20060218
  Serious: Yes (Other)
  Sender: FDA-Public Use
  Company Number: PHEH2005US07175

PATIENT
  Age: 84 Year
  Sex: Female

DRUGS (2)
  1. ENABLEX [Suspect]
     Indication: HYPERTONIC BLADDER
     Dosage: 7.5 MG, QD
     Dates: start: 20050622
  2. ENBREL [Suspect]
     Dates: start: 20050623

REACTIONS (1)
  - BLOOD PRESSURE INCREASED [None]
